FAERS Safety Report 7893132-7 (Version None)
Quarter: 2011Q4

REPORT INFORMATION
  Report Type: 
  Country: None (occurrence: None)
  Receive Date: 20111104
  Receipt Date: 20111024
  Transmission Date: 20120403
  Serious: Yes (Hospitalization)
  Sender: FDA-Public Use
  Company Number: CA-JNJFOC-20111011224

PATIENT
  Sex: Female
  Weight: 103.8 kg

DRUGS (2)
  1. REMICADE [Suspect]
     Dosage: PRESENTLY RELOADING AGAIN
     Route: 042
  2. REMICADE [Suspect]
     Indication: CROHN'S DISEASE
     Route: 042
     Dates: start: 20090109

REACTIONS (3)
  - GASTROINTESTINAL DISORDER [None]
  - SURGERY [None]
  - OBSTRUCTION [None]
